FAERS Safety Report 7031686-3 (Version None)
Quarter: 2010Q4

REPORT INFORMATION
  Report Type: 
  Country: None (occurrence: None)
  Receive Date: 20101001
  Receipt Date: 20100917
  Transmission Date: 20110411
  Serious: Yes (Hospitalization)
  Sender: FDA-Public Use
  Company Number: 019113

PATIENT
  Sex: Female

DRUGS (12)
  1. ROTIGOTINE (ROTIGOTINE) [Suspect]
     Indication: PARKINSON'S DISEASE
     Dosage: (2 MG TRANSDERMAL), (12 MG TRANSDERMAL)
     Route: 062
     Dates: start: 20100301
  2. ROTIGOTINE (ROTIGOTINE) [Suspect]
     Indication: PARKINSON'S DISEASE
     Dosage: (2 MG TRANSDERMAL), (12 MG TRANSDERMAL)
     Route: 062
     Dates: start: 20100420
  3. DOPACOL [Concomitant]
  4. AMANTADINE HYDROCHLORIDE [Concomitant]
  5. ALFACALCIDOL [Concomitant]
  6. TEPRENONE [Concomitant]
  7. DOMPERIDONE [Concomitant]
  8. CLONAZEPAM [Concomitant]
  9. SOLIFENACIN SUCCINATE [Concomitant]
  10. ETIZOLAM [Concomitant]
  11. ENTACAPONE [Concomitant]
  12. MAGNESIUM OXIDE [Concomitant]

REACTIONS (5)
  - ACTIVITIES OF DAILY LIVING IMPAIRED [None]
  - CONDITION AGGRAVATED [None]
  - DYSSTASIA [None]
  - FALL [None]
  - PARKINSON'S DISEASE [None]
